FAERS Safety Report 24205778 (Version 1)
Quarter: 2024Q3

REPORT INFORMATION
  Report Type: Spontaneous
  Country: GB (occurrence: GB)
  Receive Date: 20240813
  Receipt Date: 20240813
  Transmission Date: 20241016
  Serious: Yes (Hospitalization, Other)
  Sender: ORGANON
  Company Number: GB-MLMSERVICE-20191205-2074495-1

PATIENT
  Age: 73 Year
  Sex: Female

DRUGS (6)
  1. SIMVASTATIN [Interacting]
     Active Substance: SIMVASTATIN
     Dosage: UNK
     Route: 048
  2. CYCLOSPORINE [Interacting]
     Active Substance: CYCLOSPORINE
     Indication: Pustular psoriasis
     Dosage: UNK
  3. AMILORIDE HYDROCHLORIDE;FUROSEMIDE [Concomitant]
     Dosage: UNK
  4. GABAPENTIN [Concomitant]
     Active Substance: GABAPENTIN
     Dosage: UNK
  5. OMEPRAZOLE [Concomitant]
     Active Substance: OMEPRAZOLE
     Dosage: UNK
  6. ZOPICLONE [Concomitant]
     Active Substance: ZOPICLONE
     Dosage: UNK

REACTIONS (3)
  - Acute kidney injury [Recovered/Resolved]
  - Drug interaction [Recovered/Resolved]
  - Rhabdomyolysis [Recovered/Resolved]
